FAERS Safety Report 20977828 (Version 1)
Quarter: 2022Q2

REPORT INFORMATION
  Report Type: Spontaneous
  Country: US (occurrence: US)
  Receive Date: 20220618
  Receipt Date: 20220618
  Transmission Date: 20220721
  Serious: No
  Sender: FDA-Public Use
  Company Number: US-JNJFOC-20220624050

PATIENT
  Sex: Female

DRUGS (1)
  1. WOMENS ROGAINE UNSCENTED [Suspect]
     Active Substance: MINOXIDIL
     Indication: Alopecia
     Dosage: 3 QUARTER OF A CAPFULL. ONCE A DAY
     Route: 061
     Dates: start: 2022, end: 2022

REACTIONS (4)
  - Application site scab [Unknown]
  - Application site exfoliation [Unknown]
  - Application site pain [Unknown]
  - Overdose [Unknown]

NARRATIVE: CASE EVENT DATE: 20220101
